FAERS Safety Report 7210462-2 (Version None)
Quarter: 2011Q1

REPORT INFORMATION
  Report Type: 
  Country: None (occurrence: None)
  Receive Date: 20110105
  Receipt Date: 20101229
  Transmission Date: 20110831
  Serious: Yes (Other)
  Sender: FDA-Public Use
  Company Number: US-JNJFOC-20101209102

PATIENT
  Sex: Male
  Weight: 74.84 kg

DRUGS (14)
  1. TERAZOSIN HCL [Concomitant]
     Indication: BLOOD PRESSURE
     Route: 048
  2. LIBRAX [Concomitant]
     Indication: COLITIS
     Route: 048
  3. FUROSEMIDE [Concomitant]
     Indication: BLOOD PRESSURE
     Route: 048
  4. MINOXIDIL [Concomitant]
     Indication: BLOOD PRESSURE
     Route: 048
  5. COREG [Concomitant]
     Route: 048
  6. CORTIFOAM [Concomitant]
     Indication: COLITIS
     Route: 054
  7. COZAAR [Concomitant]
     Indication: BLOOD PRESSURE
     Route: 048
  8. CANASA [Concomitant]
     Indication: COLITIS
     Route: 054
  9. CRESTOR [Concomitant]
     Indication: BLOOD CHOLESTEROL INCREASED
     Route: 048
  10. REMICADE [Suspect]
     Indication: COLITIS ULCERATIVE
     Route: 042
  11. COLAZAL [Concomitant]
     Indication: COLITIS
     Route: 048
  12. DICYCLOMINE [Concomitant]
     Indication: COLITIS
     Route: 048
  13. AZATHIOPRINE [Concomitant]
     Indication: COLITIS
     Route: 048
  14. PRAVACHOL [Concomitant]
     Indication: BLOOD CHOLESTEROL INCREASED
     Route: 048

REACTIONS (1)
  - BLADDER NEOPLASM [None]
